FAERS Safety Report 4738297-0 (Version None)
Quarter: 2005Q3

REPORT INFORMATION
  Report Type: 
  Country: None (occurrence: None)
  Receive Date: 20050803
  Receipt Date: 20050803
  Transmission Date: 20060218
  Serious: Yes (Hospitalization)
  Sender: FDA-Public Use
  Company Number: DSK-2005-04397

PATIENT
  Age: 57 Year
  Sex: Male

DRUGS (6)
  1. TARIVID OTIC SOLUTION [Suspect]
     Indication: EAR INFECTION
     Dosage: 3 MG DROPS (2 IN 1 D)  AURICULAR (OTIC)
     Route: 001
     Dates: start: 20050301, end: 20050308
  2. PREDNISOLONE [Suspect]
     Indication: EAR INFECTION
     Dosage: 40  MG PER ORAL; 80 MG
     Route: 048
     Dates: start: 20050218, end: 20050222
  3. PREDNISOLONE [Suspect]
     Indication: EAR INFECTION
     Dosage: 40  MG PER ORAL; 80 MG
     Route: 048
     Dates: start: 20050223, end: 20050226
  4. DERINOX (PREDNISOLONE, CETRIMONIUM BROMIDE) [Suspect]
     Dosage: 4 U SOLUTION FOR INHALATION INTRA-NASAL
     Dates: start: 20050218, end: 20050522
  5. SAVARINE (CHLOROQUINE PROGUANIL HYDROCHLORIDE) [Concomitant]
  6. AUGMENTIN (AMOXICILLIN CLAVULANAT POTASSIUM) [Concomitant]

REACTIONS (3)
  - INTERMITTENT CLAUDICATION [None]
  - TENDON RUPTURE [None]
  - TENDONITIS [None]
